FAERS Safety Report 9323612 (Version 1)
Quarter: 2013Q2

REPORT INFORMATION
  Report Type: Spontaneous
  Country: CA (occurrence: CA)
  Receive Date: 20130603
  Receipt Date: 20130610
  Transmission Date: 20140414
  Serious: Yes (Other)
  Sender: FDA-Public Use
  Company Number: CA-JNJFOC-20130505199

PATIENT
  Age: 21 Year
  Sex: Male
  Weight: 71.22 kg

DRUGS (2)
  1. EXTRA STRENGTH TYLENOL SINUS DAYTIME [Suspect]
     Indication: SINUSITIS
     Route: 048
     Dates: start: 20130506, end: 20130507
  2. EXTRA STRENGTH TYLENOL SINUS NIGHTTIME [Suspect]
     Indication: SINUSITIS
     Route: 048
     Dates: start: 20130506, end: 20130507

REACTIONS (3)
  - Somnolence [Recovered/Resolved]
  - Malaise [Recovered/Resolved]
  - Hypersomnia [Recovered/Resolved]
